FAERS Safety Report 5612414-2 (Version None)
Quarter: 2008Q1

REPORT INFORMATION
  Report Type: 
  Country: None (occurrence: None)
  Receive Date: 20080204
  Receipt Date: 20080124
  Transmission Date: 20080703
  Serious: Yes (Death, Hospitalization, Disabling, Other)
  Sender: FDA-Public Use
  Company Number: US-MERCK-0708USA00616

PATIENT
  Age: 60 Year
  Sex: Female

DRUGS (2)
  1. FOSAMAX [Suspect]
     Indication: OSTEOPOROSIS
     Route: 048
     Dates: start: 20030101
  2. ZOMETA [Suspect]
     Route: 042

REACTIONS (18)
  - ANAEMIA [None]
  - BREAST MASS [None]
  - DEATH [None]
  - DENTAL CARIES [None]
  - DRUG HYPERSENSITIVITY [None]
  - FRACTURE [None]
  - HYPOAESTHESIA [None]
  - IMPAIRED HEALING [None]
  - INFECTION [None]
  - INJECTION SITE PAIN [None]
  - JOINT SWELLING [None]
  - NEOPLASM MALIGNANT [None]
  - NERVE COMPRESSION [None]
  - OEDEMA MOUTH [None]
  - OSTEONECROSIS [None]
  - PAIN MANAGEMENT [None]
  - SCIATICA [None]
  - SPONDYLITIS [None]
